FAERS Safety Report 7469465-5 (Version None)
Quarter: 2011Q2

REPORT INFORMATION
  Report Type: 
  Country: None (occurrence: None)
  Receive Date: 20110506
  Receipt Date: 20110506
  Transmission Date: 20111010
  Serious: Yes (Disabling)
  Sender: FDA-Public Use
  Company Number: None

PATIENT
  Age: 10 Year
  Sex: Male
  Weight: 49 kg

DRUGS (2)
  1. SOLU-MEDROL [Suspect]
  2. SOLU-MEDROL [Suspect]
     Indication: ASTHMA
     Dosage: 125 MG ONE TIME DOSE IM
     Route: 030
     Dates: start: 20110505, end: 20110505

REACTIONS (4)
  - RASH [None]
  - FLUSHING [None]
  - OXYGEN SATURATION DECREASED [None]
  - RESPIRATORY DISTRESS [None]
